FAERS Safety Report 8141627-3 (Version None)
Quarter: 2012Q1

REPORT INFORMATION
  Report Type: 
  Country: None (occurrence: None)
  Receive Date: 20120216
  Receipt Date: 20120208
  Transmission Date: 20120608
  Serious: Yes (Hospitalization, Other)
  Sender: FDA-Public Use
  Company Number: JP-JNJFOC-20120205893

PATIENT
  Sex: Male

DRUGS (11)
  1. RISPERDAL [Suspect]
     Route: 048
     Dates: start: 20070101, end: 20070101
  2. HALOPERIDOL [Suspect]
     Indication: PRODUCT USED FOR UNKNOWN INDICATION
     Route: 065
     Dates: start: 20101201, end: 20110609
  3. RISPERDAL [Suspect]
     Route: 048
     Dates: start: 20100101, end: 20101201
  4. ABILIFY [Suspect]
     Route: 048
     Dates: start: 20100723, end: 20110609
  5. RISPERDAL [Suspect]
     Indication: PRODUCT USED FOR UNKNOWN INDICATION
     Route: 048
     Dates: start: 20080101, end: 20080101
  6. ABILIFY [Suspect]
     Indication: PRODUCT USED FOR UNKNOWN INDICATION
     Route: 048
     Dates: start: 20090101, end: 20090101
  7. ZYPREXA [Suspect]
     Indication: PRODUCT USED FOR UNKNOWN INDICATION
     Route: 048
     Dates: start: 20100723, end: 20101201
  8. LORAZEPAM [Concomitant]
     Route: 048
     Dates: start: 20090101, end: 20090101
  9. DOGMATYL [Concomitant]
     Route: 065
     Dates: start: 20070101, end: 20070101
  10. NITRAZEPAM [Concomitant]
     Dosage: AT BED TIME
     Route: 048
     Dates: start: 20080101, end: 20080101
  11. NITRAZEPAM [Concomitant]
     Route: 048
     Dates: start: 20070101, end: 20080101

REACTIONS (5)
  - GLYCOSYLATED HAEMOGLOBIN INCREASED [None]
  - MIDDLE INSOMNIA [None]
  - BLOOD GLUCOSE INCREASED [None]
  - AKATHISIA [None]
  - TARDIVE DYSKINESIA [None]
